FAERS Safety Report 4368415-8 (Version None)
Quarter: 2004Q2

REPORT INFORMATION
  Report Type: 
  Country: None (occurrence: None)
  Receive Date: 20040602
  Receipt Date: 20040524
  Transmission Date: 20050107
  Serious: Yes (Other)
  Sender: FDA-Public Use
  Company Number: DE-GLAXOSMITHKLINE-D0043851A

PATIENT
  Age: 68 Year
  Sex: Female
  Weight: 55 kg

DRUGS (1)
  1. AVANDAMET [Suspect]
     Dosage: 502MG TWICE PER DAY
     Route: 048
     Dates: start: 20040119

REACTIONS (1)
  - MYOCARDIAL INFARCTION [None]
